FAERS Safety Report 6717108-8 (Version None)
Quarter: 2010Q2

REPORT INFORMATION
  Report Type: 
  Country: None (occurrence: None)
  Receive Date: 20100510
  Receipt Date: 20100506
  Transmission Date: 20101027
  Serious: Yes (Other)
  Sender: FDA-Public Use
  Company Number: DE-BRISTOL-MYERS SQUIBB COMPANY-15029515

PATIENT
  Age: 62 Year
  Sex: Male
  Weight: 76 kg

DRUGS (1)
  1. PRAVASIN PROTECT TABS 20 MG [Suspect]
     Indication: BLOOD CHOLESTEROL
     Dosage: FROM NOV05 10MG/DAY ORALLY.
     Route: 048
     Dates: start: 20050901

REACTIONS (1)
  - TENDON RUPTURE [None]
